FAERS Safety Report 6204648-3 (Version None)
Quarter: 2009Q2

REPORT INFORMATION
  Report Type: 
  Country: None (occurrence: None)
  Receive Date: 20090522
  Receipt Date: 20090515
  Transmission Date: 20091009
  Serious: Yes (Hospitalization, Other)
  Sender: FDA-Public Use
  Company Number: WAES 0903USA04837

PATIENT
  Age: 54 Year
  Sex: Female

DRUGS (4)
  1. FOSAPREPITANT DIMEGLUMINE [Suspect]
     Indication: PROPHYLAXIS
     Dosage: 150 MG/1X, IV
     Route: 042
     Dates: start: 20090323, end: 20090323
  2. CAP PLACEBO (UNSPECIFIED) [Suspect]
     Indication: PROPHYLAXIS
     Dosage: PO
     Route: 048
     Dates: start: 20090323, end: 20090323
  3. DEXAMETHASONE [Suspect]
     Indication: PROPHYLAXIS OF NAUSEA AND VOMITING
     Dosage: 12 MG/1X, PO
     Route: 048
     Dates: start: 20090323, end: 20090323
  4. INFUSION  ONDANSETRON HYDROCHLORIDE [Suspect]
     Indication: PROPHYLAXIS OF NAUSEA AND VOMITING
     Dosage: 50 ML/1X , IV
     Route: 042
     Dates: start: 20090323, end: 20090323

REACTIONS (2)
  - HYPERTENSIVE CRISIS [None]
  - SUPRAVENTRICULAR TACHYCARDIA [None]
